FAERS Safety Report 18180202 (Version 1)
Quarter: 2020Q3

REPORT INFORMATION
  Report Type: Spontaneous
  Country: US (occurrence: US)
  Receive Date: 20200814
  Receipt Date: 20200814
  Transmission Date: 20201103
  Serious: Yes (Life-Threatening)
  Sender: FDA-Public Use
  Company Number: None

PATIENT
  Age: 30 Year
  Sex: Female
  Weight: 79.38 kg

DRUGS (2)
  1. TINCTURE JUNGLE JUICE 1500MG DIETARY SUPPLEMENT SBD [Suspect]
     Active Substance: CANNABIDIOL\HERBALS
     Indication: INFLAMMATION
     Route: 048
     Dates: start: 20200812, end: 20200812
  2. TINCTURE JUNGLE JUICE 1500MG DIETARY SUPPLEMENT SBD [Suspect]
     Active Substance: CANNABIDIOL\HERBALS
     Indication: ANXIETY
     Route: 048
     Dates: start: 20200812, end: 20200812

REACTIONS (12)
  - Visual impairment [None]
  - Heart rate increased [None]
  - Sedation [None]
  - Dyspnoea [None]
  - Cognitive disorder [None]
  - Musculoskeletal disorder [None]
  - Near death experience [None]
  - Tunnel vision [None]
  - Confusional state [None]
  - Incoherent [None]
  - Disorientation [None]
  - Fine motor skill dysfunction [None]

NARRATIVE: CASE EVENT DATE: 20200812
